FAERS Safety Report 10132095 (Version 1)
Quarter: 2014Q2

REPORT INFORMATION
  Report Type: Spontaneous
  Country: US (occurrence: US)
  Receive Date: 20140428
  Receipt Date: 20140428
  Transmission Date: 20141212
  Serious: Yes (Other)
  Sender: FDA-Public Use
  Company Number: US-PFIZER INC-2014116660

PATIENT
  Age: 48 Year
  Sex: Female
  Weight: 78.46 kg

DRUGS (1)
  1. ZOLOFT [Suspect]
     Indication: DEPRESSION
     Dosage: UNK

REACTIONS (3)
  - Addison^s disease [Unknown]
  - Drug ineffective [Unknown]
  - Weight increased [Unknown]
